FAERS Safety Report 4449176-0 (Version None)
Quarter: 2004Q3

REPORT INFORMATION
  Report Type: 
  Country: None (occurrence: None)
  Receive Date: 20040910
  Receipt Date: 20040826
  Transmission Date: 20050211
  Serious: Yes (Other)
  Sender: FDA-Public Use
  Company Number: 2004-BP-07514RO

PATIENT
  Age: 45 Year
  Sex: Male

DRUGS (3)
  1. CALCITRIOL ORAL SOLUTION 1 MCG/ML (CALCITRIOL) [Suspect]
     Indication: HYPERPARATHYROIDISM
     Dosage: 6 MCG/WEEK TO 18 MG/DL/WEEK
     Dates: start: 19930101, end: 20010901
  2. CALCIUM CONTAINING PHOSPHATE BINDERS (CALCIUM ACETATE) [Concomitant]
  3. ALUMINIUM CONTAINING PHOSPHATE BINDERS (ALUMINIUM AGENTS) [Concomitant]

REACTIONS (10)
  - ARTHRALGIA [None]
  - BLOOD ALBUMIN DECREASED [None]
  - BLOOD PHOSPHORUS INCREASED [None]
  - CALCINOSIS [None]
  - CONDITION AGGRAVATED [None]
  - FOCAL NODULAR HYPERPLASIA [None]
  - HYPERPARATHYROIDISM [None]
  - LIGAMENT INJURY [None]
  - OEDEMA PERIPHERAL [None]
  - PRURITUS [None]
